FAERS Safety Report 8301037-2 (Version None)
Quarter: 2012Q2

REPORT INFORMATION
  Report Type: 
  Country: None (occurrence: None)
  Receive Date: 20120420
  Receipt Date: 20120418
  Transmission Date: 20120825
  Serious: Yes (Death)
  Sender: FDA-Public Use
  Company Number: JP-SANOFI-AVENTIS-2012SA027057

PATIENT

DRUGS (1)
  1. DOCETAXEL [Suspect]
     Route: 065

REACTIONS (2)
  - DIFFUSE ALVEOLAR DAMAGE [None]
  - LUNG DISORDER [None]
